FAERS Safety Report 7490379-9 (Version None)
Quarter: 2011Q2

REPORT INFORMATION
  Report Type: 
  Country: None (occurrence: None)
  Receive Date: 20110519
  Receipt Date: 20110512
  Transmission Date: 20111010
  Serious: Yes (Hospitalization, Other)
  Sender: FDA-Public Use
  Company Number: US-BAYER-201041565NA

PATIENT
  Age: 19 Year
  Sex: Female
  Weight: 97.506 kg

DRUGS (7)
  1. YAZ [Suspect]
     Indication: ACNE
     Dosage: UNK
     Dates: start: 20020101, end: 20060101
  2. PROVENTIL [Concomitant]
  3. PREDNISONE [Concomitant]
     Indication: COLITIS
     Dosage: UNK UNK, PRN
     Route: 048
  4. COLAZAL [Concomitant]
  5. YASMIN [Suspect]
     Indication: ACNE
     Dosage: UNK
     Dates: start: 20020101, end: 20060101
  6. DROSPIRENONE AND ETHINYL ESTRADIOL [Suspect]
     Dosage: UNK
     Dates: start: 20020101, end: 20060101
  7. DARVOCET-N 50 [Concomitant]
     Indication: PROCEDURAL PAIN
     Dosage: UNK UNK, PRN
     Route: 048

REACTIONS (5)
  - INJURY [None]
  - PULMONARY THROMBOSIS [None]
  - MYOCARDIAL INFARCTION [None]
  - PULMONARY EMBOLISM [None]
  - ATELECTASIS [None]
